FAERS Safety Report 9845188 (Version 1)
Quarter: 2014Q1

REPORT INFORMATION
  Report Type: Spontaneous
  Country: US (occurrence: None)
  Receive Date: 20140122
  Receipt Date: 20140122
  Transmission Date: 20141002
  Serious: Yes (Death)
  Sender: FDA-Public Use
  Company Number: B0960133A

PATIENT
  Age: 47 Year
  Sex: Female

DRUGS (4)
  1. NIFEDIPINE [Suspect]
     Route: 048
  2. METOPROLOL [Suspect]
     Route: 048
  3. PROPAFENONE [Suspect]
     Route: 048
  4. HYDROCHLOROTHIAZIDE [Suspect]
     Route: 048

REACTIONS (1)
  - Intentional drug misuse [None]
